FAERS Safety Report 9684971 (Version 2)
Quarter: 2014Q1

REPORT INFORMATION
  Report Type: Spontaneous
  Country: US (occurrence: US)
  Receive Date: 20131113
  Receipt Date: 20140219
  Transmission Date: 20141002
  Serious: No
  Sender: FDA-Public Use
  Company Number: US-BIOGENIDEC-2013BI098327

PATIENT
  Age: 22 Year
  Sex: Male

DRUGS (2)
  1. AVONEX [Suspect]
     Indication: MULTIPLE SCLEROSIS
     Route: 030
     Dates: start: 20131002
  2. AVONEX [Suspect]
     Indication: MULTIPLE SCLEROSIS
     Route: 030
     Dates: start: 20131103

REACTIONS (8)
  - Back pain [Recovered/Resolved]
  - Gait disturbance [Not Recovered/Not Resolved]
  - Joint hyperextension [Unknown]
  - Inflammation [Unknown]
  - Influenza like illness [Recovered/Resolved]
  - Pain [Recovered/Resolved]
  - Chills [Recovered/Resolved]
  - Multiple sclerosis relapse [Not Recovered/Not Resolved]
